FAERS Safety Report 9629489 (Version 10)
Quarter: 2014Q2

REPORT INFORMATION
  Report Type: Report from Study
  Country: CA (occurrence: CA)
  Receive Date: 20131017
  Receipt Date: 20140529
  Transmission Date: 20141212
  Serious: Yes (Other)
  Sender: FDA-Public Use
  Company Number: CA-ROCHE-1242749

PATIENT
  Age: 72 Year
  Sex: Female
  Weight: 69 kg

DRUGS (6)
  1. VEMURAFENIB [Suspect]
     Indication: MALIGNANT MELANOMA
     Dosage: DATE OF LAST DOSE PRIOR TO SAE : 04/JAN/2012
     Route: 048
     Dates: start: 20111209
  2. VEMURAFENIB [Suspect]
     Dosage: DATE OF LAST DOSE PRIOR TO SAE : 09/JAN/2013
     Route: 048
     Dates: start: 20120104
  3. VEMURAFENIB [Suspect]
     Dosage: DATE OF LAST DOSE PRIOR TO SAE : 25/NOV/2011
     Route: 048
     Dates: start: 20111116
  4. VALSARTAN HCT [Concomitant]
     Dosage: DAILY DOSE 160 MG/12.5MG
     Route: 065
     Dates: start: 200608
  5. ELTROXIN [Concomitant]
     Route: 065
     Dates: start: 2011
  6. FERROUS GLUCONATE [Concomitant]
     Route: 065
     Dates: start: 20120627

REACTIONS (1)
  - Breast cancer [Recovered/Resolved]
